FAERS Safety Report 23956039 (Version 1)
Quarter: 2024Q2

REPORT INFORMATION
  Report Type: Other
  Country: AR (occurrence: AR)
  Receive Date: 20240610
  Receipt Date: 20240610
  Transmission Date: 20240716
  Serious: Yes (Other)
  Sender: FDA-Public Use
  Company Number: AR-002147023-NVSC2024AR109466

PATIENT
  Sex: Female

DRUGS (5)
  1. XOLAIR [Suspect]
     Active Substance: OMALIZUMAB
     Indication: Asthma
     Dosage: 450 MG, QMO
     Route: 058
     Dates: start: 20180602
  2. XOLAIR [Suspect]
     Active Substance: OMALIZUMAB
     Dosage: 150 (UNITS NOT PROVIDED)
     Route: 065
  3. XOLAIR [Suspect]
     Active Substance: OMALIZUMAB
     Dosage: 450 MG, QMO (IN DEC)
     Route: 065
  4. XOLAIR [Suspect]
     Active Substance: OMALIZUMAB
     Dosage: 150 MG, QMO (IN JAN, FEB AND MAR)
     Route: 065
  5. XOLAIR [Suspect]
     Active Substance: OMALIZUMAB
     Dosage: 450 MG, QMO
     Route: 065

REACTIONS (7)
  - Pneumonia [Recovered/Resolved]
  - Bronchitis [Recovered/Resolved]
  - COVID-19 [Recovered/Resolved]
  - Diarrhoea [Recovered/Resolved]
  - Weight decreased [Unknown]
  - Chronic obstructive pulmonary disease [Unknown]
  - Incorrect dose administered [Unknown]

NARRATIVE: CASE EVENT DATE: 20230101
